FAERS Safety Report 9059807 (Version 1)
Quarter: 2013Q1

REPORT INFORMATION
  Report Type: Spontaneous
  Country: US (occurrence: None)
  Receive Date: 20130206
  Receipt Date: 20130206
  Transmission Date: 20140127
  Serious: Yes (Hospitalization)
  Sender: FDA-Public Use
  Company Number: None

PATIENT
  Age: 70 Year
  Sex: Male
  Weight: 79 kg

DRUGS (1)
  1. TAXOTERE [Suspect]
     Dosage: 75MG/M2, EVERY 21 DAYS, IV
     Route: 042
     Dates: start: 20120312, end: 20120312

REACTIONS (1)
  - Pneumonitis [None]
